FAERS Safety Report 8263707-4 (Version None)
Quarter: 2012Q2

REPORT INFORMATION
  Report Type: 
  Country: None (occurrence: None)
  Receive Date: 20120405
  Receipt Date: 20120323
  Transmission Date: 20120825
  Serious: Yes (Life-Threatening, Hospitalization, Other)
  Sender: FDA-Public Use
  Company Number: PL-ROCHE-1053483

PATIENT
  Sex: Male
  Weight: 100 kg

DRUGS (9)
  1. MABTHERA [Suspect]
     Indication: CHRONIC LYMPHOCYTIC LEUKAEMIA
     Route: 042
     Dates: start: 20120105, end: 20120105
  2. HEVIRAN [Concomitant]
     Route: 048
     Dates: start: 20120105, end: 20120125
  3. CYCLOPHOSPHAMIDE [Suspect]
     Indication: CHRONIC LYMPHOCYTIC LEUKAEMIA
     Dates: start: 20120105
  4. OMEPRAZOLE [Concomitant]
     Route: 048
     Dates: start: 20111215, end: 20120125
  5. CYCLOPHOSPHAMIDE [Concomitant]
     Indication: CHEMOTHERAPY
     Route: 048
     Dates: start: 20120105, end: 20120107
  6. BISEPTOL [Concomitant]
     Route: 048
     Dates: start: 20120105, end: 20120125
  7. FLUDARABINE PHOSPHATE [Suspect]
     Indication: CHRONIC LYMPHOCYTIC LEUKAEMIA
     Route: 048
     Dates: start: 20120105, end: 20120107
  8. ALLOPURINOL [Concomitant]
     Indication: PROPHYLAXIS
     Dates: start: 20111215, end: 20120125
  9. PREDNISONE [Suspect]
     Indication: CHRONIC LYMPHOCYTIC LEUKAEMIA
     Route: 048
     Dates: start: 20111215, end: 20111219

REACTIONS (3)
  - HYPERGLYCAEMIA [None]
  - BLOOD TRIGLYCERIDES [None]
  - GASTROINTESTINAL INFLAMMATION [None]
